FAERS Safety Report 6819104-9 (Version None)
Quarter: 2010Q3

REPORT INFORMATION
  Report Type: 
  Country: None (occurrence: None)
  Receive Date: 20100707
  Receipt Date: 20100628
  Transmission Date: 20110219
  Serious: Yes (Hospitalization)
  Sender: FDA-Public Use
  Company Number: JP-JNJFOC-20100701209

PATIENT
  Age: 62 Year
  Sex: Male

DRUGS (2)
  1. CRAVIT [Suspect]
     Indication: PERIODONTITIS
     Route: 048
  2. CEFZON [Concomitant]
     Indication: PERIODONTITIS
     Route: 065

REACTIONS (2)
  - HAEMATOCHEZIA [None]
  - POLYP [None]
